FAERS Safety Report 15965346 (Version 1)
Quarter: 2019Q1

REPORT INFORMATION
  Report Type: Spontaneous
  Country: FR (occurrence: FR)
  Receive Date: 20190215
  Receipt Date: 20190215
  Transmission Date: 20190418
  Serious: Yes (Life-Threatening)
  Sender: FDA-Public Use
  Company Number: FR-TEVA-2019-FR-1009914

PATIENT
  Age: 80 Year
  Sex: Female
  Weight: 86 kg

DRUGS (8)
  1. FORADIL [Suspect]
     Active Substance: FORMOTEROL FUMARATE
     Indication: ASTHMA
     Dosage: 1 DOSAGE FORMS DAILY;
     Route: 055
     Dates: end: 20170810
  2. FLIXOTIDE [Concomitant]
     Active Substance: FLUTICASONE PROPIONATE
  3. ELIQUIS [Concomitant]
     Active Substance: APIXABAN
  4. PERINDOPRIL ARGININE [Concomitant]
     Active Substance: PERINDOPRIL ARGININE
  5. FLECA?NE L.P. 200 MG, G?LULE ? LIB?RATION PROLONG?E [Suspect]
     Active Substance: FLECAINIDE ACETATE
     Indication: ARRHYTHMIA SUPRAVENTRICULAR
     Dosage: 1 DOSAGE FORMS DAILY;
     Route: 048
     Dates: end: 20180809
  6. INDAPAMIDE. [Suspect]
     Active Substance: INDAPAMIDE
     Indication: HYPERTENSION
     Dosage: 1.25 MILLIGRAM DAILY;
     Route: 048
     Dates: end: 20170809
  7. VENTOLINE [Suspect]
     Active Substance: ALBUTEROL
     Indication: ASTHMA
     Route: 055
     Dates: end: 20170809
  8. EUPHYLLINE [Suspect]
     Active Substance: THEOPHYLLINE ANHYDROUS
     Indication: ASTHMA
     Dosage: 300 MILLIGRAM DAILY;
     Route: 048
     Dates: end: 20170809

REACTIONS (2)
  - Syncope [Recovered/Resolved]
  - Torsade de pointes [Recovered/Resolved]

NARRATIVE: CASE EVENT DATE: 20170809
